FAERS Safety Report 23259591 (Version 1)
Quarter: 2023Q4

REPORT INFORMATION
  Report Type: Spontaneous
  Country: HU (occurrence: HU)
  Receive Date: 20231204
  Receipt Date: 20231204
  Transmission Date: 20240110
  Serious: Yes (Death, Hospitalization, Other)
  Sender: FDA-Public Use
  Company Number: HU-VIPHPROD-SUN-208-2023

PATIENT
  Age: 77 Year
  Sex: Female

DRUGS (1)
  1. SUNITINIB [Suspect]
     Active Substance: SUNITINIB
     Indication: Metastases to bone
     Dosage: TREATMENT IN APRIL 2023
     Route: 065
     Dates: start: 202304

REACTIONS (6)
  - Escherichia infection [Fatal]
  - Sepsis [Fatal]
  - Psychomotor retardation [Not Recovered/Not Resolved]
  - Confusional state [Not Recovered/Not Resolved]
  - Central nervous system inflammation [Not Recovered/Not Resolved]
  - Malignant neoplasm progression [Not Recovered/Not Resolved]
